FAERS Safety Report 8928902 (Version 3)
Quarter: 2013Q1

REPORT INFORMATION
  Report Type: Spontaneous
  Country: BR (occurrence: BR)
  Receive Date: 20121128
  Receipt Date: 20130109
  Transmission Date: 20140127
  Serious: Yes (Other)
  Sender: FDA-Public Use
  Company Number: BR-GENZYME-RENA-1001518

PATIENT
  Age: 30 Year
  Sex: Male
  Weight: 80 kg

DRUGS (1)
  1. RENAGEL [Suspect]
     Indication: HYPERPHOSPHATAEMIA
     Dosage: 3.2 G, TID (1600 MG 3X/DAY (6 TABLETS/DAY))
     Route: 065
     Dates: start: 201101

REACTIONS (4)
  - Transplant [Unknown]
  - Incorrect dose administered [Unknown]
  - Diabetic gastroparesis [Recovered/Resolved]
  - Diarrhoea [Unknown]
